FAERS Safety Report 17965768 (Version 1)
Quarter: 2020Q2

REPORT INFORMATION
  Report Type: Spontaneous
  Country: US (occurrence: US)
  Receive Date: 20200630
  Receipt Date: 20200630
  Transmission Date: 20200714
  Serious: Yes (Hospitalization)
  Sender: FDA-Public Use
  Company Number: US-AMGEN-USASP2020100617

PATIENT
  Sex: Male

DRUGS (1)
  1. APREMILAST [Suspect]
     Active Substance: APREMILAST
     Indication: PUSTULAR PSORIASIS
     Dosage: UNK, ONE MONTH
     Route: 065

REACTIONS (6)
  - White blood cell count increased [Unknown]
  - Streptococcal infection [Unknown]
  - Psoriasis [Unknown]
  - Drug ineffective [Unknown]
  - C-reactive protein increased [Unknown]
  - Red blood cell sedimentation rate increased [Unknown]
